FAERS Safety Report 4396211-4 (Version None)
Quarter: 2004Q3

REPORT INFORMATION
  Report Type: 
  Country: None (occurrence: None)
  Receive Date: 20040708
  Receipt Date: 20040611
  Transmission Date: 20050211
  Serious: Yes (Hospitalization)
  Sender: FDA-Public Use
  Company Number: 2004-BP-04576AU

PATIENT
  Sex: Female

DRUGS (1)
  1. CATAPRES [Suspect]
     Dosage: NR (NR, NR); TD
     Route: 062

REACTIONS (4)
  - CONVULSION [None]
  - HEADACHE [None]
  - HYPERTENSION [None]
  - NAUSEA [None]
